FAERS Safety Report 6723444-1 (Version None)
Quarter: 2010Q2

REPORT INFORMATION
  Report Type: 
  Country: None (occurrence: None)
  Receive Date: 20100513
  Receipt Date: 20100510
  Transmission Date: 20101027
  Serious: Yes (Hospitalization)
  Sender: FDA-Public Use
  Company Number: PHHY2010DE24453

PATIENT
  Sex: Male
  Weight: 70 kg

DRUGS (3)
  1. RITALIN [Suspect]
     Dosage: 50 MG, QD
     Route: 048
     Dates: start: 20070101
  2. PARACETAMOL [Concomitant]
     Indication: BACK PAIN
     Dosage: 500 MG, QD
     Dates: start: 20100414, end: 20100420
  3. CEFUROXIM ^CURASAN^ [Concomitant]
     Indication: TOOTH ABSCESS
     Dosage: 500 MG/DAY
     Dates: start: 20100416

REACTIONS (1)
  - BLOOD CREATINE PHOSPHOKINASE INCREASED [None]
